FAERS Safety Report 5689325-X (Version None)
Quarter: 2008Q1

REPORT INFORMATION
  Report Type: 
  Country: None (occurrence: None)
  Receive Date: 20080331
  Receipt Date: 20080319
  Transmission Date: 20080703
  Serious: Yes (Other)
  Sender: FDA-Public Use
  Company Number: AU-PFIZER INC-2008011535

PATIENT
  Sex: Male
  Weight: 55 kg

DRUGS (12)
  1. VFEND [Suspect]
     Indication: ASPERGILLOSIS
     Route: 042
     Dates: start: 20080122, end: 20080125
  2. VANCOMYCIN [Concomitant]
     Indication: FEBRILE NEUTROPENIA
     Route: 042
  3. MEROPENEM [Concomitant]
     Indication: FEBRILE NEUTROPENIA
     Route: 042
  4. ACYCLOVIR [Concomitant]
     Route: 042
  5. AMPHOTERICIN B [Concomitant]
     Route: 042
  6. FLUCONAZOLE [Concomitant]
     Dosage: TEXT:200/DAY
     Route: 048
  7. RESPRIM [Concomitant]
     Dosage: TEXT:2-FREQ:TWICE DAILY THREE TIMES PER WEEK
  8. OMEPRAZOLE [Concomitant]
  9. MOXIFLOXACIN HCL [Concomitant]
     Dosage: TEXT:400/DAY
  10. METRONIDAZOLE HCL [Concomitant]
  11. OXYCODONE HCL [Concomitant]
  12. NEUPOGEN [Concomitant]

REACTIONS (7)
  - AGITATION [None]
  - CONFUSIONAL STATE [None]
  - HALLUCINATION, AUDITORY [None]
  - HALLUCINATION, TACTILE [None]
  - HALLUCINATION, VISUAL [None]
  - PARANOIA [None]
  - VISUAL DISTURBANCE [None]
